FAERS Safety Report 4442063-3 (Version None)
Quarter: 2004Q3

REPORT INFORMATION
  Report Type: 
  Country: None (occurrence: None)
  Receive Date: 20040907
  Receipt Date: 20040823
  Transmission Date: 20050211
  Serious: Yes (Life-Threatening, Hospitalization, Disabling)
  Sender: FDA-Public Use
  Company Number: GB-JNJFOC-20040807491

PATIENT
  Age: 33 Year
  Sex: Female
  Weight: 120 kg

DRUGS (5)
  1. RISPERDAL [Suspect]
     Indication: BIPOLAR DISORDER
     Route: 049
     Dates: start: 20020101, end: 20040805
  2. VENLAFAXINE [Suspect]
     Indication: BIPOLAR DISORDER
     Route: 049
     Dates: start: 20030901, end: 20040805
  3. LITHIUM [Suspect]
     Indication: BIPOLAR DISORDER
     Route: 049
     Dates: start: 20010101, end: 20040805
  4. DIANETTE [Suspect]
     Route: 049
     Dates: start: 20040101, end: 20040805
  5. DIANETTE [Suspect]
     Indication: DRUG USE FOR UNKNOWN INDICATION
     Route: 049
     Dates: start: 20040101, end: 20040805

REACTIONS (3)
  - DRUG INTERACTION [None]
  - PANCREATITIS [None]
  - RENAL TUBULAR NECROSIS [None]
